FAERS Safety Report 19897981 (Version 1)
Quarter: 2021Q3

REPORT INFORMATION
  Report Type: Spontaneous
  Country: US (occurrence: US)
  Receive Date: 20210929
  Receipt Date: 20210929
  Transmission Date: 20211014
  Serious: Yes (Other)
  Sender: FDA-Public Use
  Company Number: US-OTSUKA-2021_015779

PATIENT
  Sex: Male

DRUGS (2)
  1. REXULTI [Suspect]
     Active Substance: BREXPIPRAZOLE
     Indication: MAJOR DEPRESSION
     Dosage: 0.5 MG
     Route: 065
  2. REXULTI [Suspect]
     Active Substance: BREXPIPRAZOLE
     Indication: ADJUVANT THERAPY

REACTIONS (1)
  - Akathisia [Unknown]
